FAERS Safety Report 7028482-X (Version None)
Quarter: 2010Q4

REPORT INFORMATION
  Report Type: 
  Country: None (occurrence: None)
  Receive Date: 20101005
  Receipt Date: 20100923
  Transmission Date: 20110411
  Serious: Yes (Disabling, Other)
  Sender: FDA-Public Use
  Company Number: AU-PFIZER INC-2010104179

PATIENT
  Age: 48 Year
  Sex: Male

DRUGS (4)
  1. LYRICA [Suspect]
     Indication: BACK PAIN
     Dosage: 75 MG, 1X/DAY
     Route: 048
     Dates: start: 20100601, end: 20100701
  2. NEXIUM [Concomitant]
     Indication: GASTROOESOPHAGEAL REFLUX DISEASE
     Dosage: 40 MG, 1X/DAY
     Route: 048
  3. ACETAMINOPHEN W/ CODEINE [Concomitant]
     Indication: BACK PAIN
     Dosage: 30/500MG  AS NEEDED
     Route: 048
  4. MOBIC [Concomitant]
     Indication: BACK PAIN
     Dosage: 15 MG, 1X/DAY
     Route: 048

REACTIONS (5)
  - ASTHENIA [None]
  - FEELING ABNORMAL [None]
  - HYPOAESTHESIA [None]
  - VISION BLURRED [None]
  - VOMITING [None]
